FAERS Safety Report 15020765 (Version 1)
Quarter: 2018Q2

REPORT INFORMATION
  Report Type: Spontaneous
  Country: US (occurrence: US)
  Receive Date: 20180618
  Receipt Date: 20180618
  Transmission Date: 20180711
  Serious: No
  Sender: FDA-Public Use
  Company Number: US-PFIZER INC-2018239358

PATIENT
  Sex: Female

DRUGS (2)
  1. VITAMIN A [Suspect]
     Active Substance: VITAMIN A
     Indication: VISUAL IMPAIRMENT
     Dosage: UNK
  2. VITAMIN A [Suspect]
     Active Substance: VITAMIN A
     Indication: VITAMIN A DEFICIENCY

REACTIONS (1)
  - Drug ineffective [Unknown]
